FAERS Safety Report 9343668 (Version 1)
Quarter: 2013Q2

REPORT INFORMATION
  Report Type: Spontaneous
  Country: FR (occurrence: FR)
  Receive Date: 20130612
  Receipt Date: 20130612
  Transmission Date: 20140414
  Serious: Yes (Hospitalization)
  Sender: FDA-Public Use
  Company Number: FR-MERCK-1306FRA001143

PATIENT
  Age: 65 Year
  Sex: Male

DRUGS (8)
  1. EZETROL [Suspect]
     Dosage: 10 MG, QD
     Route: 048
  2. CELLCEPT [Suspect]
     Indication: LIVER TRANSPLANT
     Dosage: 1000 MG, QAM
     Route: 048
     Dates: start: 2005
  3. ADVAGRAF [Suspect]
     Indication: LIVER TRANSPLANT
     Dosage: 1 MG, QAM
     Route: 048
     Dates: start: 2005
  4. ADVAGRAF [Suspect]
     Dosage: 1.5 MG, QD
     Dates: start: 20130321
  5. KARDEGIC [Suspect]
     Dosage: 75 MG, UNK
     Route: 048
  6. INEXIUM [Suspect]
     Dosage: 20 MG, QD
     Route: 048
  7. COVERSYL [Suspect]
     Dosage: 10 MG, UNK
     Route: 048
  8. UNSPECIFIED [Suspect]
     Indication: CHOLESTASIS
     Dosage: 1 DF, BID
     Route: 048

REACTIONS (2)
  - Intestinal ulcer [Unknown]
  - Enterocolitis haemorrhagic [Recovering/Resolving]
